FAERS Safety Report 21658883 (Version 1)
Quarter: 2022Q4

REPORT INFORMATION
  Report Type: Spontaneous
  Country: JP (occurrence: JP)
  Receive Date: 20221129
  Receipt Date: 20221129
  Transmission Date: 20230113
  Serious: Yes (Hospitalization)
  Sender: FDA-Public Use
  Company Number: JP-TEVA-2022-JP-2830912

PATIENT
  Age: 99 Year
  Sex: Male

DRUGS (3)
  1. AMLODIPINE [Suspect]
     Active Substance: AMLODIPINE BESYLATE
     Indication: Hypertension
     Dosage: 5 MILLIGRAM DAILY;
     Route: 065
  2. MEMANTINE [Suspect]
     Active Substance: MEMANTINE
     Indication: Dementia
     Dosage: 10 MILLIGRAM DAILY;
     Route: 065
  3. MAGNESIUM OXIDE [Suspect]
     Active Substance: MAGNESIUM OXIDE
     Indication: Constipation
     Dosage: 9000 MILLIGRAM DAILY;
     Route: 065

REACTIONS (5)
  - Bradycardia [Recovering/Resolving]
  - Constipation [Unknown]
  - Hypermagnesaemia [Recovered/Resolved]
  - Hypotension [Recovered/Resolved]
  - Cardiac failure [Recovered/Resolved]
